FAERS Safety Report 15346037 (Version 4)
Quarter: 2019Q2

REPORT INFORMATION
  Report Type: Report from Study
  Country: None (occurrence: US)
  Receive Date: 20180904
  Receipt Date: 20190506
  Transmission Date: 20190711
  Serious: Yes (Hospitalization, Other)
  Sender: FDA-Public Use
  Company Number: US-ABBVIE-18K-163-2472686-00

PATIENT
  Age: 16 Year
  Sex: Male
  Weight: 65.38 kg

DRUGS (7)
  1. HUMIRA [Suspect]
     Active Substance: ADALIMUMAB
     Route: 058
     Dates: start: 20190321
  2. CEFDINIR. [Concomitant]
     Active Substance: CEFDINIR
     Indication: PRODUCT USED FOR UNKNOWN INDICATION
  3. METHOTREXATE. [Suspect]
     Active Substance: METHOTREXATE
     Indication: PRODUCT USED FOR UNKNOWN INDICATION
     Route: 065
  4. ZYRTEC [Concomitant]
     Active Substance: CETIRIZINE HYDROCHLORIDE
     Indication: SEASONAL ALLERGY
  5. FOLIC ACID. [Concomitant]
     Active Substance: FOLIC ACID
     Indication: PRODUCT USED FOR UNKNOWN INDICATION
  6. HUMIRA [Suspect]
     Active Substance: ADALIMUMAB
     Route: 058
     Dates: start: 201806, end: 20180726
  7. HUMIRA [Suspect]
     Active Substance: ADALIMUMAB
     Indication: CROHN^S DISEASE
     Route: 058
     Dates: start: 20180410, end: 201806

REACTIONS (11)
  - Intestinal stenosis [Not Recovered/Not Resolved]
  - Seasonal allergy [Unknown]
  - Pseudopolyposis [Unknown]
  - Colitis [Unknown]
  - Injection site reaction [Unknown]
  - Crohn^s disease [Recovered/Resolved]
  - Immunodeficiency [Unknown]
  - Sinusitis [Recovered/Resolved]
  - Intestinal obstruction [Recovered/Resolved]
  - Drug level below therapeutic [Unknown]
  - Intestinal fibrosis [Not Recovered/Not Resolved]

NARRATIVE: CASE EVENT DATE: 2018
